FAERS Safety Report 9279113 (Version 1)
Quarter: 2013Q2

REPORT INFORMATION
  Report Type: Spontaneous
  Country: US (occurrence: US)
  Receive Date: 20130508
  Receipt Date: 20130508
  Transmission Date: 20140414
  Serious: No
  Sender: FDA-Public Use
  Company Number: AL-ASTRAZENECA-2013SE25628

PATIENT
  Sex: Female

DRUGS (1)
  1. FASLODEX [Suspect]
     Dosage: UNKNOWN DOSE, MONTHLY
     Route: 030

REACTIONS (6)
  - Muscular weakness [Unknown]
  - Pain [Unknown]
  - Swelling [Unknown]
  - Injection site pain [Unknown]
  - Injection site bruising [Unknown]
  - Injection site nodule [Unknown]
